FAERS Safety Report 24983657 (Version 4)
Quarter: 2025Q3

REPORT INFORMATION
  Report Type: Spontaneous
  Country: US (occurrence: US)
  Receive Date: 20250219
  Receipt Date: 20250919
  Transmission Date: 20251020
  Serious: No
  Sender: BIOGEN
  Company Number: US-BIOGEN-2023BI01227172

PATIENT
  Age: 59 Year
  Sex: Female

DRUGS (22)
  1. VUMERITY [Suspect]
     Active Substance: DIROXIMEL FUMARATE
     Indication: Multiple sclerosis
     Dosage: START DATE ALSO REPORTED AS 29-JUN-2021?STOP DATE ALSO REPORTED AS 06-JUL-2021
     Route: 050
     Dates: start: 20210606, end: 20210612
  2. VUMERITY [Suspect]
     Active Substance: DIROXIMEL FUMARATE
     Route: 050
     Dates: start: 20231013
  3. VUMERITY [Suspect]
     Active Substance: DIROXIMEL FUMARATE
     Route: 050
     Dates: start: 20210613, end: 20230424
  4. VUMERITY [Suspect]
     Active Substance: DIROXIMEL FUMARATE
     Route: 050
     Dates: start: 20230425
  5. VUMERITY [Suspect]
     Active Substance: DIROXIMEL FUMARATE
     Route: 050
     Dates: start: 20210707, end: 202507
  6. VUMERITY [Suspect]
     Active Substance: DIROXIMEL FUMARATE
     Route: 050
     Dates: start: 202507
  7. VUMERITY [Suspect]
     Active Substance: DIROXIMEL FUMARATE
     Route: 050
     Dates: start: 20210629, end: 20210705
  8. VUMERITY [Suspect]
     Active Substance: DIROXIMEL FUMARATE
     Route: 050
     Dates: start: 20210706, end: 202508
  9. VUMERITY [Suspect]
     Active Substance: DIROXIMEL FUMARATE
     Route: 050
     Dates: start: 202508
  10. ATORVASTATIN CALCIUM [Concomitant]
     Active Substance: ATORVASTATIN CALCIUM
     Route: 050
  11. CARVEDILOL [Concomitant]
     Active Substance: CARVEDILOL
     Route: 050
  12. BACLOFEN [Concomitant]
     Active Substance: BACLOFEN
     Route: 050
  13. ATIVAN [Concomitant]
     Active Substance: LORAZEPAM
     Route: 050
  14. EFFEXOR XR [Concomitant]
     Active Substance: VENLAFAXINE HYDROCHLORIDE
     Route: 050
  15. FUROSEMIDE [Concomitant]
     Active Substance: FUROSEMIDE
     Route: 050
  16. JARDIANCE [Concomitant]
     Active Substance: EMPAGLIFLOZIN
     Route: 050
  17. TRULICITY [Concomitant]
     Active Substance: DULAGLUTIDE
     Route: 050
  18. VITAMIN D3 [Concomitant]
     Active Substance: CHOLECALCIFEROL
     Route: 050
  19. PLAVIX [Concomitant]
     Active Substance: CLOPIDOGREL BISULFATE
     Route: 050
  20. CYMBALTA [Concomitant]
     Active Substance: DULOXETINE HYDROCHLORIDE
     Route: 050
  21. AIRBORNE [Concomitant]
     Active Substance: HERBALS\MINERALS\VITAMINS
     Route: 050
  22. ASPIRIN EC LOW DOSE [Concomitant]
     Route: 050

REACTIONS (4)
  - White blood cell count decreased [Unknown]
  - Magnetic resonance imaging abnormal [Unknown]
  - Central nervous system lesion [Unknown]
  - Arthritis [Unknown]

NARRATIVE: CASE EVENT DATE: 20230424
